FAERS Safety Report 18430967 (Version 1)
Quarter: 2020Q4

REPORT INFORMATION
  Report Type: Spontaneous
  Country: US (occurrence: US)
  Receive Date: 20201027
  Receipt Date: 20201027
  Transmission Date: 20210114
  Serious: No
  Sender: FDA-Public Use
  Company Number: US-TEVA-2020-US-1837969

PATIENT

DRUGS (2)
  1. AJOVY [Suspect]
     Active Substance: FREMANEZUMAB-VFRM
     Indication: MIGRAINE PROPHYLAXIS
     Dosage: TAKEN FOR LESS THAN 1 MONTH
     Route: 065
     Dates: start: 20200501
  2. AJOVY [Suspect]
     Active Substance: FREMANEZUMAB-VFRM

REACTIONS (5)
  - Neck pain [Unknown]
  - Dizziness [Unknown]
  - Depression [Unknown]
  - Drug ineffective [Unknown]
  - Influenza like illness [Unknown]
